FAERS Safety Report 6332217-3 (Version None)
Quarter: 2009Q3

REPORT INFORMATION
  Report Type: 
  Country: None (occurrence: None)
  Receive Date: 20090828
  Receipt Date: 20090818
  Transmission Date: 20100115
  Serious: Yes (Hospitalization)
  Sender: FDA-Public Use
  Company Number: AU-PFIZER INC-2009256545

PATIENT
  Age: 41 Year

DRUGS (3)
  1. MYCOBUTIN [Suspect]
     Indication: HELICOBACTER INFECTION
     Dosage: 300 MG 1X/DAY
     Dates: end: 20090815
  2. DOXYLIN ^ALPHAPHARM^ [Concomitant]
     Indication: HELICOBACTER INFECTION
     Dosage: 100 MG, 2X/DAY
     Dates: end: 20090815
  3. PARIET [Concomitant]
     Dosage: 20 MG, 2X/DAY

REACTIONS (6)
  - CHILLS [None]
  - MYALGIA [None]
  - NAUSEA [None]
  - NEUTROPENIA [None]
  - PAIN [None]
  - VOMITING [None]
